FAERS Safety Report 23994229 (Version 1)
Quarter: 2024Q2

REPORT INFORMATION
  Report Type: Spontaneous
  Country: US (occurrence: US)
  Receive Date: 20240620
  Receipt Date: 20240620
  Transmission Date: 20240715
  Serious: Yes (Other)
  Sender: FDA-Public Use
  Company Number: US-AUROBINDO-AUR-APL-2024-029552

PATIENT
  Sex: Male

DRUGS (2)
  1. CLONIDINE [Interacting]
     Active Substance: CLONIDINE
     Indication: Procedural hypertension
     Dosage: 50 MICROGRAM
     Route: 042
  2. ESMOLOL [Interacting]
     Active Substance: ESMOLOL HYDROCHLORIDE
     Indication: Tachycardia
     Dosage: 75 MILLIGRAM
     Route: 042

REACTIONS (2)
  - Bradycardia [Recovered/Resolved]
  - Drug interaction [Unknown]
